FAERS Safety Report 6773565-2 (Version None)
Quarter: 2010Q2

REPORT INFORMATION
  Report Type: 
  Country: None (occurrence: None)
  Receive Date: 20100611
  Receipt Date: 20090817
  Transmission Date: 20101027
  Serious: Yes (Hospitalization, Other)
  Sender: FDA-Public Use
  Company Number: 2009SP021064

PATIENT
  Age: 48 Year
  Sex: Female
  Weight: 65.7716 kg

DRUGS (2)
  1. NUVARING [Suspect]
     Indication: MENSTRUATION IRREGULAR
     Dates: start: 20070101, end: 20070801
  2. THYROID MEDICATION [Concomitant]

REACTIONS (5)
  - INFECTION [None]
  - NEOPLASM MALIGNANT [None]
  - OVARIAN CYST [None]
  - PULMONARY EMBOLISM [None]
  - THROMBOSIS [None]
